FAERS Safety Report 8073949-9 (Version None)
Quarter: 2012Q1

REPORT INFORMATION
  Report Type: 
  Country: None (occurrence: None)
  Receive Date: 20120126
  Receipt Date: 20120125
  Transmission Date: 20120608
  Serious: No
  Sender: FDA-Public Use
  Company Number: US-BAYER-2012-008195

PATIENT
  Age: 69 Year
  Sex: Female
  Weight: 59 kg

DRUGS (20)
  1. GABAPENTIN [Concomitant]
  2. ACETAMINOPHEN [Concomitant]
  3. BETASERON [Suspect]
     Indication: PRODUCT USED FOR UNKNOWN INDICATION
     Dosage: 0.25 MG, QOD
     Route: 058
  4. PLAVIX [Concomitant]
  5. VITAMIN B-12 [Concomitant]
  6. VITAMIN D [Concomitant]
  7. CALCIUM D [Concomitant]
  8. FOLIC ACID [Concomitant]
  9. MULTI-VITAMINS [Concomitant]
  10. AZELASTINE HCL [Concomitant]
  11. ASCORBIC ACID [Concomitant]
  12. PROVIGIL [Concomitant]
  13. OSTEO BI-FLEX [Concomitant]
  14. BIOTIN [Concomitant]
  15. NEXIUM [Concomitant]
  16. ALISKIREN [Concomitant]
  17. AMLODIPINE [Concomitant]
  18. LIPITOR [Concomitant]
  19. AMANTADINE HCL [Concomitant]
  20. ZINC SULFATE [Concomitant]

REACTIONS (2)
  - INJECTION SITE PAIN [None]
  - INJECTION SITE HAEMATOMA [None]
